FAERS Safety Report 20097317 (Version 1)
Quarter: 2021Q4

REPORT INFORMATION
  Report Type: Spontaneous
  Country: US (occurrence: None)
  Receive Date: 20211120
  Receipt Date: 20211120
  Transmission Date: 20220304
  Serious: Yes (Death)
  Sender: FDA-Public Use
  Company Number: None

PATIENT
  Age: 56 Year
  Sex: Female

DRUGS (10)
  1. PIQRAY [Suspect]
     Active Substance: ALPELISIB
     Indication: Breast cancer female
     Dosage: FREQUENCY : DAILY;?
     Route: 048
     Dates: start: 20210410, end: 20211119
  2. AMLODIPINE [Concomitant]
     Active Substance: AMLODIPINE BESYLATE
  3. DEXAMETHASONE [Concomitant]
     Active Substance: DEXAMETHASONE
  4. ELQUIS [Concomitant]
  5. ESCITALOPRAM [Concomitant]
     Active Substance: ESCITALOPRAM OXALATE
  6. FOLIC ACID [Concomitant]
     Active Substance: FOLIC ACID
  7. MOXIFLOXACIN [Concomitant]
     Active Substance: MOXIFLOXACIN
  8. NADOLOL [Concomitant]
     Active Substance: NADOLOL
  9. PANTOPRAZOLE [Concomitant]
     Active Substance: PANTOPRAZOLE
  10. SULFAMETHOXAZOLE\TRIMETHOPRIM [Concomitant]
     Active Substance: SULFAMETHOXAZOLE\TRIMETHOPRIM

REACTIONS (1)
  - Death [None]

NARRATIVE: CASE EVENT DATE: 20211119
